FAERS Safety Report 7552174-1 (Version None)
Quarter: 2011Q2

REPORT INFORMATION
  Report Type: 
  Country: None (occurrence: None)
  Receive Date: 20110616
  Receipt Date: 20040123
  Transmission Date: 20111010
  Serious: Yes (Death)
  Sender: FDA-Public Use
  Company Number: PHHO2004JP00615

PATIENT
  Age: 85 Year
  Sex: Female

DRUGS (3)
  1. ALINAMIN [Suspect]
     Dosage: 50 MG, UNK
     Route: 048
     Dates: start: 19921112
  2. DIOVAN [Suspect]
     Indication: HYPERTENSION
     Dosage: 80 MG / DAY
     Route: 048
     Dates: start: 20030603
  3. GEFANIL [Suspect]
     Dosage: 3 MG / DAY
     Route: 048
     Dates: start: 19800104

REACTIONS (1)
  - MYOCARDIAL INFARCTION [None]
